FAERS Safety Report 11553574 (Version 1)
Quarter: 2015Q3

REPORT INFORMATION
  Report Type: Spontaneous
  Country: CA (occurrence: CA)
  Receive Date: 20150925
  Receipt Date: 20150925
  Transmission Date: 20151125
  Serious: Yes (Death, Other)
  Sender: FDA-Public Use
  Company Number: CA-BAYER-2015-424839

PATIENT
  Age: 26 Year
  Sex: Female

DRUGS (2)
  1. XOFIGO [Suspect]
     Active Substance: RADIUM RA-223 DICHLORIDE
     Indication: PHAEOCHROMOCYTOMA
     Dosage: 1.74 MBQ, ONCE (2ND DOSE)
  2. XOFIGO [Suspect]
     Active Substance: RADIUM RA-223 DICHLORIDE
     Indication: PARAGANGLION NEOPLASM MALIGNANT
     Dosage: 1.931 MBQ (50 KBQ/KG) (FIRST DOSE)

REACTIONS (9)
  - Pelvic pain [None]
  - Off label use [None]
  - Platelet count decreased [None]
  - Haemoglobin decreased [None]
  - Pulmonary haemorrhage [Fatal]
  - Febrile neutropenia [None]
  - Therapy responder [None]
  - Metastases to soft tissue [None]
  - Pubis fracture [None]
